FAERS Safety Report 21951521 (Version 3)
Quarter: 2023Q2

REPORT INFORMATION
  Report Type: Spontaneous
  Country: AZ (occurrence: AZ)
  Receive Date: 20230203
  Receipt Date: 20230511
  Transmission Date: 20230721
  Serious: Yes (Other)
  Sender: FDA-Public Use
  Company Number: AZ-002147023-NVSC2023AZ020782

PATIENT
  Age: 13 Year
  Sex: Female
  Weight: 30 kg

DRUGS (2)
  1. JADENU [Suspect]
     Active Substance: DEFERASIROX
     Indication: Serum ferritin increased
     Dosage: 21 MG/KG, QD
     Route: 048
     Dates: start: 20201111, end: 20230127
  2. FERRIPROX [Concomitant]
     Active Substance: DEFERIPRONE
     Indication: Serum ferritin increased
     Dosage: 75 MG/KG, TID
     Route: 048
     Dates: start: 20201111

REACTIONS (3)
  - Aspartate aminotransferase increased [Not Recovered/Not Resolved]
  - Alanine aminotransferase increased [Not Recovered/Not Resolved]
  - Thalassaemia beta [Unknown]

NARRATIVE: CASE EVENT DATE: 20230127
